FAERS Safety Report 8957757 (Version 1)
Quarter: 2012Q4

REPORT INFORMATION
  Report Type: 
  Country: GB (occurrence: GB)
  Receive Date: 20121211
  Receipt Date: 20121211
  Transmission Date: 20130627
  Serious: Yes (Other)
  Sender: FDA-Public Use
  Company Number: GB-WATSON-2012-21705

PATIENT
  Sex: Male

DRUGS (2)
  1. SIMVASTATIN (UNKNOWN) [Suspect]
     Indication: CORONARY ARTERY BYPASS
     Dosage: 40 mg, daily
     Route: 065
  2. DILTIAZEM HYDROCHLORIDE [Suspect]
     Indication: CORONARY ARTERY BYPASS
     Dosage: 60 mg, tid. Intended for 6 weeks, continued for nearly 5 months.
     Route: 065

REACTIONS (3)
  - Oedema peripheral [Unknown]
  - Bladder dysfunction [Unknown]
  - Medication error [Unknown]
